FAERS Safety Report 22329730 (Version 1)
Quarter: 2023Q2

REPORT INFORMATION
  Report Type: Other
  Country: US (occurrence: None)
  Receive Date: 20230517
  Receipt Date: 20230517
  Transmission Date: 20230722
  Serious: No
  Sender: FDA-Public Use
  Company Number: US-ROCHE-3286359

PATIENT
  Age: 36 Year
  Sex: Female

DRUGS (8)
  1. TOCILIZUMAB [Suspect]
     Active Substance: TOCILIZUMAB
     Indication: COVID-19
     Route: 065
  2. REMDESIVIR [Concomitant]
     Active Substance: REMDESIVIR
     Route: 042
  3. DEXAMETHASONE [Concomitant]
     Active Substance: DEXAMETHASONE
  4. TOCILIZUMAB [Concomitant]
     Active Substance: TOCILIZUMAB
  5. CEFEPIME [Concomitant]
     Active Substance: CEFEPIME HYDROCHLORIDE
  6. METRONIDAZOLE [Concomitant]
     Active Substance: METRONIDAZOLE
  7. VANCOMYCIN [Concomitant]
     Active Substance: VANCOMYCIN
  8. MICAFUNGIN [Concomitant]
     Active Substance: MICAFUNGIN SODIUM

REACTIONS (2)
  - Off label use [Unknown]
  - No adverse event [Unknown]
